FAERS Safety Report 6339801-1 (Version None)
Quarter: 2009Q3

REPORT INFORMATION
  Report Type: 
  Country: None (occurrence: None)
  Receive Date: 20090903
  Receipt Date: 20090825
  Transmission Date: 20100115
  Serious: Yes (Other)
  Sender: FDA-Public Use
  Company Number: PHHY2009DK33095

PATIENT
  Sex: Male
  Weight: 90 kg

DRUGS (6)
  1. ACLASTA [Suspect]
     Indication: OSTEOPOROSIS
     Dosage: 5 MG ONCE YEARLY
     Dates: start: 20081201
  2. SELO-ZOK [Concomitant]
     Indication: HYPERTENSION
     Dosage: 25 MG, QD
     Route: 048
  3. NORVASC [Concomitant]
     Indication: HYPERTENSION
     Dosage: 10 MG, QD
     Route: 048
  4. CRESTOR [Concomitant]
     Indication: HYPERTENSION
     Dosage: 20 MG, QD
     Route: 048
  5. CALCIUM [Concomitant]
     Route: 048
  6. VITAMIN D3 [Concomitant]
     Route: 048

REACTIONS (5)
  - CHROMATURIA [None]
  - HAEMATURIA [None]
  - RENAL FUNCTION TEST ABNORMAL [None]
  - RENAL NEOPLASM [None]
  - RENAL PAIN [None]
